FAERS Safety Report 4699107-3 (Version None)
Quarter: 2005Q2

REPORT INFORMATION
  Report Type: 
  Country: None (occurrence: None)
  Receive Date: 20050624
  Receipt Date: 20050614
  Transmission Date: 20051028
  Serious: Yes (Hospitalization, Other)
  Sender: FDA-Public Use
  Company Number: US-AMGEN-US138572

PATIENT
  Sex: Male
  Weight: 95.3 kg

DRUGS (5)
  1. ENBREL [Suspect]
     Indication: PSORIATIC ARTHROPATHY
     Dates: start: 20040601
  2. METOPROLOL [Concomitant]
     Dates: start: 20040601
  3. NIACIN [Concomitant]
     Dates: start: 20040901
  4. LOVASTATIN [Concomitant]
     Dates: start: 20040901
  5. LISINOPRIL [Concomitant]
     Dates: start: 20040701

REACTIONS (2)
  - JOINT STIFFNESS [None]
  - VASCULAR BYPASS GRAFT [None]
